FAERS Safety Report 9060879 (Version 1)
Quarter: 2013Q1

REPORT INFORMATION
  Report Type: Spontaneous
  Country: US (occurrence: US)
  Receive Date: 20130204
  Receipt Date: 20130204
  Transmission Date: 20140127
  Serious: No
  Sender: FDA-Public Use
  Company Number: US-009507513-1301USA011151

PATIENT
  Age: 22 None
  Sex: Female
  Weight: 90.25 kg

DRUGS (1)
  1. IMPLANON [Suspect]
     Indication: CONTRACEPTION
     Dosage: UNK
     Dates: start: 200909

REACTIONS (4)
  - Weight increased [Unknown]
  - Menstruation normal [Unknown]
  - Medical device complication [Unknown]
  - Incorrect drug administration duration [Unknown]
